FAERS Safety Report 19582351 (Version 1)
Quarter: 2021Q3

REPORT INFORMATION
  Report Type: Spontaneous
  Country: US (occurrence: US)
  Receive Date: 20210720
  Receipt Date: 20210720
  Transmission Date: 20211014
  Serious: Yes (Death)
  Sender: FDA-Public Use
  Company Number: None

PATIENT
  Age: 51 Year
  Sex: Female

DRUGS (8)
  1. CAPECITABINE. [Suspect]
     Active Substance: CAPECITABINE
     Indication: BREAST CANCER FEMALE
     Route: 048
     Dates: start: 20210525, end: 20210614
  2. MORPHINE SUL [Concomitant]
     Active Substance: MORPHINE SULFATE
  3. ALBUTEROL. [Concomitant]
     Active Substance: ALBUTEROL
  4. IBRANCE [Concomitant]
     Active Substance: PALBOCICLIB
  5. ONDANSETRON [Concomitant]
     Active Substance: ONDANSETRON
  6. BISACODYL. [Concomitant]
     Active Substance: BISACODYL
  7. DEXAMETHASON [Concomitant]
     Active Substance: DEXAMETHASONE
  8. LORAZEPAM. [Concomitant]
     Active Substance: LORAZEPAM

REACTIONS (1)
  - Death [None]

NARRATIVE: CASE EVENT DATE: 20210614
